FAERS Safety Report 8874311 (Version 1)
Quarter: 2012Q4

REPORT INFORMATION
  Report Type: 
  Country: SE (occurrence: SE)
  Receive Date: 20121023
  Receipt Date: 20121023
  Transmission Date: 20130627
  Serious: Yes (Other)
  Sender: FDA-Public Use
  Company Number: SE-CELGENEUS-150-21880-12010227

PATIENT

DRUGS (5)
  1. REVLIMID [Suspect]
     Indication: CLL
     Dosage: 2.5-5-10mg or 5-10-15mg
     Route: 048
  2. ALEMTUZUMAB [Concomitant]
     Indication: CLL
     Route: 065
  3. G-CSF [Concomitant]
     Indication: DRUG USE FOR UNKNOWN INDICATION
     Route: 058
  4. COTRIMOXAZOLE [Concomitant]
     Indication: INFECTION PROPHYLAXIS
     Route: 065
  5. VALACICLOVIR [Concomitant]
     Indication: INFECTION PROPHYLAXIS
     Route: 065

REACTIONS (13)
  - Ventricular arrhythmia [Unknown]
  - Listeria sepsis [Unknown]
  - Tumour flare [Unknown]
  - Thrombosis [Unknown]
  - Blood potassium increased [Unknown]
  - Cytomegalovirus infection [Unknown]
  - Back pain [Unknown]
  - Abdominal pain upper [Unknown]
  - Neutropenia [Unknown]
  - Thrombocytopenia [Unknown]
  - Influenza [Unknown]
  - Pneumococcal infection [Unknown]
  - Hypotension [Unknown]
